FAERS Safety Report 6980771-0 (Version None)
Quarter: 2010Q3

REPORT INFORMATION
  Report Type: 
  Country: None (occurrence: None)
  Receive Date: 20100910
  Receipt Date: 20100910
  Transmission Date: 20110219
  Serious: Yes (Other)
  Sender: FDA-Public Use
  Company Number: None

PATIENT
  Age: 51 Year
  Sex: Female
  Weight: 75.2971 kg

DRUGS (4)
  1. DONEPEZIL HCL [Suspect]
     Indication: BRAIN NEOPLASM
     Dosage: 10MG DAILY PO
     Dates: start: 20100614, end: 20100705
  2. CELEXA [Concomitant]
  3. ZOMETA [Concomitant]
  4. FASLODEX [Concomitant]

REACTIONS (3)
  - BACK PAIN [None]
  - CHEST PAIN [None]
  - MUSCULOSKELETAL PAIN [None]
